FAERS Safety Report 18319223 (Version 1)
Quarter: 2020Q3

REPORT INFORMATION
  Report Type: Spontaneous
  Country: JP (occurrence: JP)
  Receive Date: 20200928
  Receipt Date: 20200928
  Transmission Date: 20201103
  Serious: Yes (Death, Other)
  Sender: FDA-Public Use
  Company Number: PHJP2017JP035394

PATIENT
  Age: 68 Year
  Sex: Male

DRUGS (1)
  1. VOTRIENT [Suspect]
     Active Substance: PAZOPANIB HYDROCHLORIDE
     Indication: RENAL CELL CARCINOMA
     Dosage: 400 MG, UNK
     Route: 048
     Dates: start: 20171030

REACTIONS (6)
  - Brain oedema [Fatal]
  - Visual field tests abnormal [Unknown]
  - Hypertension [Unknown]
  - Respiratory arrest [Unknown]
  - Cerebral haemorrhage [Fatal]
  - Subdural haematoma [Unknown]

NARRATIVE: CASE EVENT DATE: 20171107
